FAERS Safety Report 9384209 (Version 1)
Quarter: 2013Q3

REPORT INFORMATION
  Report Type: Spontaneous
  Country: DE (occurrence: DE)
  Receive Date: 20130705
  Receipt Date: 20130705
  Transmission Date: 20140515
  Serious: Yes (Life-Threatening)
  Sender: FDA-Public Use
  Company Number: DE-ASTRAZENECA-2013SE49998

PATIENT
  Age: 79 Year
  Sex: Male
  Weight: 96 kg

DRUGS (4)
  1. BRILIQUE [Suspect]
     Indication: ACUTE MYOCARDIAL INFARCTION
     Dosage: 180 MG AS LOADING DOSE
     Route: 048
     Dates: start: 20130622, end: 20130623
  2. ACETYLSALICYLIC ACID [Concomitant]
  3. PRASUGREL [Concomitant]
  4. CLOPIDOGREL [Concomitant]

REACTIONS (1)
  - Thrombocytopenia [Recovering/Resolving]
